FAERS Safety Report 21977914 (Version 1)
Quarter: 2023Q1

REPORT INFORMATION
  Report Type: Spontaneous
  Country: US (occurrence: US)
  Receive Date: 20230210
  Receipt Date: 20230210
  Transmission Date: 20230418
  Serious: Yes (Other)
  Sender: FDA-Public Use
  Company Number: US-MYLANLABS-2023M1013618

PATIENT
  Age: 8 Year
  Sex: Female

DRUGS (2)
  1. CLOBETASOL [Suspect]
     Active Substance: CLOBETASOL
     Indication: Acanthosis nigricans
     Dosage: UNK, USE OF SUPER-HIGH POTENCY TOPICAL CLOBETASOL OINTMENT FROM THE PAST 4 MONTHS
     Route: 061
  2. CLOBETASOL [Suspect]
     Active Substance: CLOBETASOL
     Indication: Lichen planus

REACTIONS (2)
  - Type 1 diabetes mellitus [Unknown]
  - Off label use [Unknown]
